FAERS Safety Report 19380489 (Version 1)
Quarter: 2021Q2

REPORT INFORMATION
  Report Type: Spontaneous
  Country: TW (occurrence: TW)
  Receive Date: 20210607
  Receipt Date: 20210607
  Transmission Date: 20210717
  Serious: Yes (Other)
  Sender: FDA-Public Use
  Company Number: TW-SUN PHARMACEUTICAL INDUSTRIES LTD-2021R1-299024

PATIENT
  Age: 22 Year
  Sex: Female

DRUGS (1)
  1. PROPYLTHIOURACIL. [Suspect]
     Active Substance: PROPYLTHIOURACIL
     Indication: PRIMARY HYPERTHYROIDISM
     Dosage: 50 MILLIGRAM, TID
     Route: 065

REACTIONS (1)
  - Thyrotoxic periodic paralysis [Unknown]
